FAERS Safety Report 6103739-5 (Version None)
Quarter: 2009Q1

REPORT INFORMATION
  Report Type: 
  Country: None (occurrence: None)
  Receive Date: 20090305
  Receipt Date: 20090227
  Transmission Date: 20090719
  Serious: Yes (Other)
  Sender: FDA-Public Use
  Company Number: PHEH2009US02180

PATIENT
  Sex: Female

DRUGS (2)
  1. TEKTURNA HCT [Suspect]
     Dosage: 300MG/ 25 MG
     Dates: start: 20090227
  2. TEKTURNA [Suspect]
     Dosage: 150 MG
     Dates: end: 20090226

REACTIONS (2)
  - DYSPHONIA [None]
  - OESOPHAGEAL SPASM [None]
